FAERS Safety Report 5160177-X (Version None)
Quarter: 2006Q4

REPORT INFORMATION
  Report Type: 
  Country: None (occurrence: None)
  Receive Date: 20061120
  Receipt Date: 20061101
  Transmission Date: 20070319
  Serious: Yes (Hospitalization, Other)
  Sender: FDA-Public Use
  Company Number: US-2006-028789

PATIENT
  Age: 41 Year
  Sex: Female
  Weight: 53.5 kg

DRUGS (5)
  1. BETASERON [Suspect]
     Indication: RELAPSING-REMITTING MULTIPLE SCLEROSIS
     Dosage: 8 MIU, EVERY 2D, SUBCUTANEOUS
     Route: 058
     Dates: start: 19950506
  2. LEVOTHYROXINE SODIUM [Concomitant]
  3. TUMS [Concomitant]
  4. TYLENOL [Concomitant]
  5. ALBUTEROL [Concomitant]

REACTIONS (10)
  - ANAEMIA [None]
  - BLOOD POTASSIUM DECREASED [None]
  - GASTRIC ULCER [None]
  - INFLUENZA LIKE ILLNESS [None]
  - INTRAOCULAR PRESSURE INCREASED [None]
  - MULTIPLE SYSTEM ATROPHY [None]
  - ORAL INTAKE REDUCED [None]
  - RESPIRATORY TRACT INFECTION [None]
  - RETINAL DETACHMENT [None]
  - WEIGHT DECREASED [None]
